FAERS Safety Report 9035259 (Version 1)
Quarter: 2013Q1

REPORT INFORMATION
  Report Type: Report from Study
  Country: US (occurrence: US)
  Receive Date: 20130129
  Receipt Date: 20130129
  Transmission Date: 20140127
  Serious: No
  Sender: FDA-Public Use
  Company Number: US-ABBOTT-12P-163-0898952-00

PATIENT
  Age: 30 Year
  Sex: Female
  Weight: 68.1 kg

DRUGS (11)
  1. HUMIRA 40 MG/0.8 ML PEN [Suspect]
     Indication: BEHCET^S SYNDROME
     Dates: start: 20111230
  2. METHOTREXATE [Concomitant]
     Indication: BEHCET^S SYNDROME
  3. PREDNISONE [Concomitant]
     Indication: BEHCET^S SYNDROME
  4. CYCLOSPORINE [Concomitant]
     Indication: BEHCET^S SYNDROME
  5. COMBIGAN [Concomitant]
     Indication: ABNORMAL SENSATION IN EYE
  6. COMBIGAN [Concomitant]
     Indication: BEHCET^S SYNDROME
  7. PREDNISOLONE [Concomitant]
     Indication: EYE DISORDER
  8. PREDNISOLONE [Concomitant]
     Indication: BEHCET^S SYNDROME
  9. FOLIC ACID [Concomitant]
     Indication: VITAMIN SUPPLEMENTATION
  10. VITAMIN D [Concomitant]
     Indication: VITAMIN SUPPLEMENTATION
  11. CALCIUM [Concomitant]
     Indication: MINERAL SUPPLEMENTATION

REACTIONS (2)
  - Injection site pain [Not Recovered/Not Resolved]
  - Off label use [Not Recovered/Not Resolved]
